FAERS Safety Report 21753933 (Version 1)
Quarter: 2022Q4

REPORT INFORMATION
  Report Type: Spontaneous
  Country: US (occurrence: None)
  Receive Date: 20221219
  Receipt Date: 20221219
  Transmission Date: 20230112
  Serious: Yes (Life-Threatening, Hospitalization, Other)
  Sender: FDA-Public Use
  Company Number: None

PATIENT
  Age: 27 Year
  Sex: Male

DRUGS (1)
  1. AMMONIA INHALANTS [Suspect]
     Active Substance: AMMONIA

REACTIONS (1)
  - Seizure [None]

NARRATIVE: CASE EVENT DATE: 20221206
